FAERS Safety Report 24678335 (Version 1)
Quarter: 2024Q4

REPORT INFORMATION
  Report Type: Spontaneous
  Country: CN (occurrence: CN)
  Receive Date: 20241129
  Receipt Date: 20241129
  Transmission Date: 20250115
  Serious: Yes (Hospitalization)
  Sender: SANOFI AVENTIS
  Company Number: CN-SA-2024SA344009

PATIENT
  Age: 71 Year
  Sex: Female
  Weight: 54 kg

DRUGS (2)
  1. INSULIN GLARGINE [Suspect]
     Active Substance: INSULIN GLARGINE
     Indication: Blood glucose increased
     Dosage: 20 IU, QD
     Route: 058
     Dates: start: 20241114, end: 20241119
  2. Isophane protamine recombinant human insulin injection (pre mixed 30/7 [Concomitant]
     Indication: Blood glucose increased
     Dosage: 12 IU, BID
     Route: 058
     Dates: start: 20241116, end: 20241119

REACTIONS (3)
  - Swelling [Recovering/Resolving]
  - Sodium retention [Recovering/Resolving]
  - Blood glucose fluctuation [Unknown]

NARRATIVE: CASE EVENT DATE: 20241101
